FAERS Safety Report 16116928 (Version 3)
Quarter: 2019Q2

REPORT INFORMATION
  Report Type: Spontaneous
  Country: US (occurrence: US)
  Receive Date: 20190326
  Receipt Date: 20190625
  Transmission Date: 20190711
  Serious: No
  Sender: FDA-Public Use
  Company Number: US-PFIZER INC-2019127770

PATIENT
  Age: 67 Year
  Sex: Female
  Weight: 77.98 kg

DRUGS (3)
  1. XANAX [Suspect]
     Active Substance: ALPRAZOLAM
     Indication: INSOMNIA
     Dosage: 1 MG, AS NEEDED
  2. XANAX [Suspect]
     Active Substance: ALPRAZOLAM
     Indication: LIMB DISCOMFORT
  3. XANAX [Suspect]
     Active Substance: ALPRAZOLAM
     Indication: RESTLESS LEGS SYNDROME
     Dosage: 1 MG, AS NEEDED AT NIGHT/BEDTIME
     Route: 048
     Dates: start: 2016

REACTIONS (2)
  - Drug effective for unapproved indication [Unknown]
  - Off label use [Unknown]

NARRATIVE: CASE EVENT DATE: 2016
